FAERS Safety Report 14432332 (Version 32)
Quarter: 2021Q3

REPORT INFORMATION
  Report Type: Spontaneous
  Country: US (occurrence: US)
  Receive Date: 20180124
  Receipt Date: 20210816
  Transmission Date: 20211014
  Serious: Yes (Other)
  Sender: FDA-Public Use
  Company Number: US-INCYTE CORPORATION-2017IN010186

PATIENT

DRUGS (48)
  1. JAKAFI [Suspect]
     Active Substance: RUXOLITINIB
     Dosage: 10 MG, BID
     Route: 048
     Dates: start: 20171023
  2. JAKAFI [Suspect]
     Active Substance: RUXOLITINIB
     Dosage: 10 MG, BID
     Route: 048
  3. JAKAFI [Suspect]
     Active Substance: RUXOLITINIB
     Dosage: 10 MILLIGRAM, BID
     Route: 048
  4. JAKAFI [Suspect]
     Active Substance: RUXOLITINIB
     Dosage: 10 MILLIGRAM, BID
     Route: 048
  5. GABAPENTIN. [Concomitant]
     Active Substance: GABAPENTIN
     Indication: PRODUCT USED FOR UNKNOWN INDICATION
     Dosage: 30 MILLIGRAM, QD
     Route: 065
  6. VITAMIN D3 [Concomitant]
     Active Substance: CHOLECALCIFEROL
     Indication: PRODUCT USED FOR UNKNOWN INDICATION
     Dosage: 1 UNIT, QD
     Route: 065
  7. CALCIUM [Concomitant]
     Active Substance: CALCIUM
     Indication: PRODUCT USED FOR UNKNOWN INDICATION
     Dosage: UNK, QD
     Route: 065
  8. BIOTIN [Concomitant]
     Active Substance: BIOTIN
     Indication: PRODUCT USED FOR UNKNOWN INDICATION
     Dosage: 5000 MICROGRAM, QD
     Route: 065
  9. JAKAFI [Suspect]
     Active Substance: RUXOLITINIB
     Dosage: 10 MG, BID
     Route: 065
  10. JAKAFI [Suspect]
     Active Substance: RUXOLITINIB
     Dosage: 10 MILLIGRAM, BID
     Route: 048
  11. FISH OIL [Concomitant]
     Active Substance: FISH OIL
     Indication: PRODUCT USED FOR UNKNOWN INDICATION
     Dosage: 1200 MILLIGRAM, QD
     Route: 065
  12. STOOL SOFTENER (DOCUSATE) [Concomitant]
     Active Substance: DOCUSATE
     Indication: PRODUCT USED FOR UNKNOWN INDICATION
     Dosage: 100 MILLIGRAM, PRN
     Route: 065
  13. JAKAFI [Suspect]
     Active Substance: RUXOLITINIB
     Dosage: 10 MG, BID
     Route: 065
     Dates: start: 20180524
  14. JAKAFI [Suspect]
     Active Substance: RUXOLITINIB
     Dosage: 10 MG, BID
     Route: 048
  15. JAKAFI [Suspect]
     Active Substance: RUXOLITINIB
     Dosage: 10 MG, BID
     Route: 048
  16. JAKAFI [Suspect]
     Active Substance: RUXOLITINIB
     Dosage: 10 MILLIGRAM, BID
     Route: 048
  17. JAKAFI [Suspect]
     Active Substance: RUXOLITINIB
     Dosage: 10 MILLIGRAM, BID
     Route: 048
  18. PRAVASTATIN SODIUM. [Concomitant]
     Active Substance: PRAVASTATIN SODIUM
     Indication: PRODUCT USED FOR UNKNOWN INDICATION
     Dosage: 40 MILLIGRAM, QD
     Route: 065
  19. LACTAID [Concomitant]
     Active Substance: LACTASE
     Indication: PRODUCT USED FOR UNKNOWN INDICATION
     Dosage: AS NEEDED
     Route: 065
  20. JAKAFI [Suspect]
     Active Substance: RUXOLITINIB
     Dosage: 10 MILLIGRAM, BID
     Route: 048
     Dates: start: 20190919, end: 20191108
  21. JAKAFI [Suspect]
     Active Substance: RUXOLITINIB
     Dosage: 10 MILLIGRAM, BID
     Route: 048
  22. EVISTA [Concomitant]
     Active Substance: RALOXIFENE HYDROCHLORIDE
     Indication: PRODUCT USED FOR UNKNOWN INDICATION
     Dosage: 60 MILLIGRAM
     Route: 065
  23. MULTIVITAMIN                       /07504101/ [Concomitant]
     Active Substance: VITAMINS
     Indication: PRODUCT USED FOR UNKNOWN INDICATION
     Dosage: UNK, QD
     Route: 065
  24. OCUVITE [Concomitant]
     Active Substance: VITAMINS
     Indication: PRODUCT USED FOR UNKNOWN INDICATION
     Dosage: UNK
     Route: 065
  25. JAKAFI [Suspect]
     Active Substance: RUXOLITINIB
     Indication: PRIMARY MYELOFIBROSIS
     Dosage: 20 MG, BID
     Route: 048
     Dates: start: 20171114, end: 20171122
  26. JAKAFI [Suspect]
     Active Substance: RUXOLITINIB
     Dosage: 15 MG, BID
     Route: 048
     Dates: start: 20180419
  27. JAKAFI [Suspect]
     Active Substance: RUXOLITINIB
     Dosage: 10 MILLIGRAM, BID
     Route: 048
  28. FIBER [Concomitant]
     Active Substance: PSYLLIUM HUSK
     Indication: PRODUCT USED FOR UNKNOWN INDICATION
     Dosage: 1 TABLET, QD
     Route: 065
  29. JAKAFI [Suspect]
     Active Substance: RUXOLITINIB
     Indication: MYELOFIBROSIS
     Dosage: 20 MG, BID
     Route: 048
     Dates: start: 20171020
  30. JAKAFI [Suspect]
     Active Substance: RUXOLITINIB
     Dosage: 10 MG, BID
     Route: 065
  31. JAKAFI [Suspect]
     Active Substance: RUXOLITINIB
     Dosage: 10 MILLIGRAM, BID
     Route: 048
     Dates: start: 20171023
  32. JAKAFI [Suspect]
     Active Substance: RUXOLITINIB
     Dosage: 10 MILLIGRAM, BID
     Route: 048
  33. FLUDROCORTISONE [Suspect]
     Active Substance: FLUDROCORTISONE
     Indication: BLOOD PRESSURE DECREASED
     Route: 065
  34. ASPIRIN                            /00002701/ [Concomitant]
     Active Substance: ASPIRIN
     Indication: PRODUCT USED FOR UNKNOWN INDICATION
     Dosage: 81 MG, UNK
     Route: 065
  35. JAKAFI [Suspect]
     Active Substance: RUXOLITINIB
     Dosage: 15 MG, BID
     Route: 048
     Dates: start: 20180419
  36. JAKAFI [Suspect]
     Active Substance: RUXOLITINIB
     Dosage: 10 MG, BID
     Route: 048
  37. JAKAFI [Suspect]
     Active Substance: RUXOLITINIB
     Dosage: 10 MILLIGRAM, BID
     Route: 048
  38. JAKAFI [Suspect]
     Active Substance: RUXOLITINIB
     Dosage: 10 MILLIGRAM, BID
     Route: 048
  39. JAKAFI [Suspect]
     Active Substance: RUXOLITINIB
     Dosage: 10 MILLIGRAM, BID
     Route: 048
  40. JAKAFI [Suspect]
     Active Substance: RUXOLITINIB
     Dosage: 10 MILLIGRAM, BID
     Route: 048
  41. OMEPRAZOLE. [Concomitant]
     Active Substance: OMEPRAZOLE
     Indication: PRODUCT USED FOR UNKNOWN INDICATION
     Dosage: 20 MILLIGRAM, QD
     Route: 065
  42. SOOTHE XP [Concomitant]
     Active Substance: LIGHT MINERAL OIL\MINERAL OIL
     Indication: DRY EYE
  43. PROBIOTICS NOS [Concomitant]
     Active Substance: PROBIOTICS NOS
     Indication: PRODUCT USED FOR UNKNOWN INDICATION
     Route: 065
  44. JAKAFI [Suspect]
     Active Substance: RUXOLITINIB
     Dosage: 15 MG, BID
     Route: 048
     Dates: start: 20171020
  45. JAKAFI [Suspect]
     Active Substance: RUXOLITINIB
     Dosage: 10 MILLIGRAM, BID
     Route: 048
  46. JAKAFI [Suspect]
     Active Substance: RUXOLITINIB
     Dosage: 10 MILLIGRAM, BID
     Route: 048
  47. JAKAFI [Suspect]
     Active Substance: RUXOLITINIB
     Dosage: 10 MILLIGRAM, BID
     Route: 048
  48. FIBER [Concomitant]
     Active Substance: PSYLLIUM HUSK
     Dosage: PRN

REACTIONS (73)
  - Immunodeficiency [Unknown]
  - Loss of personal independence in daily activities [Not Recovered/Not Resolved]
  - Eyelash changes [Unknown]
  - Erythema [Unknown]
  - Diarrhoea [Not Recovered/Not Resolved]
  - Squamous cell carcinoma [Unknown]
  - Gastrointestinal disorder [Not Recovered/Not Resolved]
  - Weight fluctuation [Unknown]
  - Chills [Recovered/Resolved]
  - Red blood cell count increased [Unknown]
  - Pruritus [Unknown]
  - Precancerous skin lesion [Not Recovered/Not Resolved]
  - Bronchitis [Unknown]
  - Arthropod bite [Unknown]
  - Scratch [Unknown]
  - Dry eye [Unknown]
  - Spinal deformity [Not Recovered/Not Resolved]
  - Blood count abnormal [Unknown]
  - White blood cell count decreased [Recovering/Resolving]
  - Asthenia [Recovered/Resolved]
  - Gastrointestinal ulcer [Unknown]
  - Platelet count decreased [Unknown]
  - Rash [Unknown]
  - Malaise [Unknown]
  - Dyspnoea exertional [Unknown]
  - Dyschezia [Not Recovered/Not Resolved]
  - Spleen disorder [Unknown]
  - Back disorder [Not Recovered/Not Resolved]
  - Anaemia [Recovering/Resolving]
  - Aspartate aminotransferase increased [Unknown]
  - Constipation [Not Recovered/Not Resolved]
  - Abdominal pain [Unknown]
  - Influenza [Recovering/Resolving]
  - Abnormal faeces [Unknown]
  - Hepatomegaly [Not Recovered/Not Resolved]
  - Decreased activity [Unknown]
  - Urinary incontinence [Recovered/Resolved]
  - Blood pressure decreased [Recovering/Resolving]
  - Skin discolouration [Unknown]
  - Lactose intolerance [Recovering/Resolving]
  - Spinal osteoarthritis [Recovering/Resolving]
  - Headache [Not Recovered/Not Resolved]
  - Pain in extremity [Unknown]
  - Limb discomfort [Not Recovered/Not Resolved]
  - Eating disorder [Recovering/Resolving]
  - Gait disturbance [Unknown]
  - Vertigo [Recovered/Resolved]
  - Scab [Not Recovered/Not Resolved]
  - Musculoskeletal disorder [Not Recovered/Not Resolved]
  - Arthritis [Not Recovered/Not Resolved]
  - Dizziness [Recovered/Resolved]
  - Balance disorder [Not Recovered/Not Resolved]
  - Loss of consciousness [Recovered/Resolved]
  - Skin cancer [Not Recovered/Not Resolved]
  - Gastric disorder [Not Recovered/Not Resolved]
  - Feeling abnormal [Unknown]
  - Inadequate diet [Unknown]
  - Haemoglobin decreased [Unknown]
  - Herpes zoster [Recovered/Resolved]
  - Splenomegaly [Recovered/Resolved]
  - Blood pressure increased [Unknown]
  - Pneumonia [Unknown]
  - Sudden onset of sleep [Unknown]
  - Early satiety [Unknown]
  - Disturbance in attention [Unknown]
  - Somnolence [Unknown]
  - Cough [Recovering/Resolving]
  - Fatigue [Not Recovered/Not Resolved]
  - Haematocrit decreased [Unknown]
  - Increased appetite [Unknown]
  - Arthralgia [Unknown]
  - Back pain [Unknown]
  - Contusion [Unknown]

NARRATIVE: CASE EVENT DATE: 20171114
